FAERS Safety Report 10663262 (Version 1)
Quarter: 2014Q4

REPORT INFORMATION
  Report Type: Report from Study
  Country: BR (occurrence: BR)
  Receive Date: 20141218
  Receipt Date: 20141218
  Transmission Date: 20150529
  Serious: Yes (Death, Hospitalization)
  Sender: FDA-Public Use
  Company Number: PHHY2014BR165620

PATIENT
  Sex: Female
  Weight: 59 kg

DRUGS (1)
  1. EXELON PATCH [Suspect]
     Active Substance: RIVASTIGMINE
     Indication: DEMENTIA ALZHEIMER^S TYPE
     Dosage: 18 MG (10 CM2), QD
     Route: 062
     Dates: start: 20141109, end: 20141110

REACTIONS (4)
  - Renal disorder [Fatal]
  - Vomiting [Unknown]
  - Urinary tract infection [Fatal]
  - Diarrhoea [Unknown]
